FAERS Safety Report 9333493 (Version 2)
Quarter: 2013Q4

REPORT INFORMATION
  Report Type: Spontaneous
  Country: CH (occurrence: CH)
  Receive Date: 20130606
  Receipt Date: 20131009
  Transmission Date: 20140711
  Serious: Yes (Hospitalization)
  Sender: FDA-Public Use
  Company Number: CH-TEVA-408497ISR

PATIENT
  Age: 51 Year
  Sex: Male
  Weight: 41 kg

DRUGS (9)
  1. CITALOPRAM [Suspect]
     Indication: AFFECTIVE DISORDER
     Dosage: 20 MILLIGRAM DAILY;
     Route: 048
     Dates: start: 2012, end: 20130425
  2. ONDANSETRON [Suspect]
     Indication: NAUSEA
     Route: 048
     Dates: start: 2012, end: 20130425
  3. METHADON [Suspect]
     Indication: SUBSTANCE ABUSE
     Dosage: 400 MILLIGRAM DAILY;
     Route: 048
     Dates: start: 2008, end: 20130425
  4. METHADON [Suspect]
     Dosage: DOSES NOT SPECIFIED, BUT LOWER THAN THE DOSE ADMINISTERED FROM 2008
     Route: 048
     Dates: start: 1994, end: 2008
  5. LEXOTANIL [Concomitant]
     Dosage: 18 MILLIGRAM DAILY;
     Route: 048
     Dates: start: 2013, end: 201305
  6. LEXOTANIL [Concomitant]
     Dosage: 9 MILLIGRAM DAILY;
     Dates: start: 2008, end: 2013
  7. LEXOTANIL [Concomitant]
     Dosage: 9 MILLIGRAM DAILY;
     Route: 048
     Dates: start: 201305
  8. ASPIRIN CARDIO 100 MG [Concomitant]
     Dosage: 100 MILLIGRAM DAILY;
     Route: 048
     Dates: start: 2012
  9. ATRIPLA [Concomitant]
     Indication: HIV INFECTION
     Route: 048
     Dates: start: 2012

REACTIONS (4)
  - Electrocardiogram QT prolonged [Recovered/Resolved]
  - Asthenia [Unknown]
  - Normochromic normocytic anaemia [Unknown]
  - Malnutrition [Unknown]
